FAERS Safety Report 4617185-4 (Version None)
Quarter: 2005Q1

REPORT INFORMATION
  Report Type: 
  Country: None (occurrence: None)
  Receive Date: 20050323
  Receipt Date: 20050314
  Transmission Date: 20050727
  Serious: Yes (Other)
  Sender: FDA-Public Use
  Company Number: AU-GLAXOSMITHKLINE-B0375545A

PATIENT
  Sex: Male

DRUGS (2)
  1. AROPAX [Suspect]
     Indication: ILL-DEFINED DISORDER
     Route: 065
  2. NO CONCURRENT MEDICATION [Concomitant]

REACTIONS (7)
  - CONVULSION [None]
  - FLAT AFFECT [None]
  - PERSONALITY CHANGE [None]
  - PROMISCUITY [None]
  - RETROGRADE AMNESIA [None]
  - SUICIDAL IDEATION [None]
  - TRANCE [None]
